FAERS Safety Report 5910193-2 (Version None)
Quarter: 2008Q4

REPORT INFORMATION
  Report Type: 
  Country: None (occurrence: None)
  Receive Date: 20081007
  Receipt Date: 20080129
  Transmission Date: 20090506
  Serious: No
  Sender: FDA-Public Use
  Company Number: US-ASTRAZENECA-2007UW23045

PATIENT
  Age: 83 Year
  Sex: Female
  Weight: 63.5 kg

DRUGS (3)
  1. ARIMIDEX [Suspect]
     Indication: BREAST CANCER
     Route: 048
     Dates: start: 20040601
  2. MICARDIS [Concomitant]
  3. FOSAMAX [Concomitant]

REACTIONS (8)
  - ASTHENIA [None]
  - BONE DENSITY DECREASED [None]
  - BONE DISORDER [None]
  - CRYING [None]
  - ILL-DEFINED DISORDER [None]
  - MOOD SWINGS [None]
  - MUSCLE DISORDER [None]
  - PAIN IN EXTREMITY [None]
